FAERS Safety Report 23679280 (Version 1)
Quarter: 2024Q1

REPORT INFORMATION
  Report Type: Spontaneous
  Country: US (occurrence: None)
  Receive Date: 20240327
  Receipt Date: 20240327
  Transmission Date: 20240409
  Serious: Yes (Hospitalization)
  Sender: FDA-Public Use
  Company Number: None

PATIENT
  Age: 62 Year
  Sex: Male

DRUGS (1)
  1. LENALIDOMIDE [Suspect]
     Active Substance: LENALIDOMIDE
     Route: 048
     Dates: start: 202402, end: 20240224

REACTIONS (3)
  - Nausea [None]
  - Blood calcium decreased [None]
  - Blood potassium decreased [None]

NARRATIVE: CASE EVENT DATE: 20240224
